FAERS Safety Report 9852717 (Version 1)
Quarter: 2014Q1

REPORT INFORMATION
  Report Type: Spontaneous
  Country: US (occurrence: US)
  Receive Date: 20140129
  Receipt Date: 20140129
  Transmission Date: 20141002
  Serious: No
  Sender: FDA-Public Use
  Company Number: US-B.I. PHARMACEUTICALS,INC./RIDGEFIELD-2014-BI-02432BP

PATIENT
  Sex: Female

DRUGS (1)
  1. COMBIVENT [Suspect]
     Indication: ASTHMA
     Dosage: DOSE PER APP.: 18 MCG / 103 MCG; DAILY DOSE: 72 MCG/412 MCG
     Route: 055
     Dates: start: 2004

REACTIONS (1)
  - Off label use [Unknown]
